FAERS Safety Report 16314825 (Version 1)
Quarter: 2019Q2

REPORT INFORMATION
  Report Type: Spontaneous
  Country: DE (occurrence: DE)
  Receive Date: 20190515
  Receipt Date: 20190515
  Transmission Date: 20190711
  Serious: Yes (Other)
  Sender: FDA-Public Use
  Company Number: DE-TEVA-2019-DE-1049144

PATIENT
  Sex: Female

DRUGS (1)
  1. HYDROCHLOROTHIAZID [Suspect]
     Active Substance: HYDROCHLOROTHIAZIDE
     Indication: HYPERTENSION
     Dosage: 1X1 FOR 20 YEARS,1 DOSAGE FORM FOR 1DAY
     Route: 048

REACTIONS (1)
  - Basal cell carcinoma [Unknown]
